FAERS Safety Report 4393381-9 (Version None)
Quarter: 2004Q3

REPORT INFORMATION
  Report Type: 
  Country: None (occurrence: None)
  Receive Date: 20040707
  Receipt Date: 20040707
  Transmission Date: 20050211
  Serious: No
  Sender: FDA-Public Use
  Company Number: None

PATIENT
  Age: 55 Year
  Sex: Male
  Weight: 90.7194 kg

DRUGS (2)
  1. LIPITOR [Suspect]
  2. ALLEGRA [Suspect]

REACTIONS (3)
  - ARTHRALGIA [None]
  - BACK PAIN [None]
  - MYALGIA [None]
